FAERS Safety Report 18594260 (Version 1)
Quarter: 2020Q4

REPORT INFORMATION
  Report Type: Spontaneous
  Country: US (occurrence: US)
  Receive Date: 20201209
  Receipt Date: 20201209
  Transmission Date: 20210114
  Serious: Yes (Life-Threatening, Other)
  Sender: FDA-Public Use
  Company Number: US-PFIZER INC-2020444018

PATIENT
  Age: 9 Month
  Sex: Female

DRUGS (13)
  1. DEXMEDETOMIDINE HYDROCHLORIDE. [Suspect]
     Active Substance: DEXMEDETOMIDINE HYDROCHLORIDE
     Indication: SEDATION
     Dosage: 0.08 UG/KG
     Route: 040
  2. FENTANYL. [Concomitant]
     Active Substance: FENTANYL
     Indication: SEDATION
     Dosage: UNK (INFUSION)
     Dates: start: 20200219, end: 20200219
  3. TACROLIMUS. [Interacting]
     Active Substance: TACROLIMUS
     Dosage: DOSE WAS ADJUSTED TO MAIN GOAL TROUGH LEVELS 10-12
     Route: 048
  4. CISATRACURIUM. [Concomitant]
     Active Substance: CISATRACURIUM
     Dosage: 10 UG/KG (10 MCG/KG/MIN)
     Dates: start: 202002, end: 20200220
  5. CISATRACURIUM. [Concomitant]
     Active Substance: CISATRACURIUM
     Indication: PARALYSIS
     Dosage: UNK (INFUSION)
     Dates: start: 20200219, end: 202002
  6. MIDAZOLAM. [Concomitant]
     Active Substance: MIDAZOLAM
     Dosage: 0.05 MG/KG
     Route: 040
  7. CISATRACURIUM. [Concomitant]
     Active Substance: CISATRACURIUM
     Dosage: 6 UG/KG (6MCG/KG/MIN)
     Dates: start: 202002, end: 202002
  8. CISATRACURIUM. [Concomitant]
     Active Substance: CISATRACURIUM
     Dosage: 8 UG/KG  (8 MCG/KG/MIN)
     Dates: start: 202002, end: 202002
  9. PLASMALYTE [Concomitant]
     Active Substance: ELECTROLYTES NOS
     Dosage: 40 ML/KG FLUID BOLUSES
  10. FENTANYL. [Concomitant]
     Active Substance: FENTANYL
     Dosage: 2 UG/KG
     Route: 040
     Dates: start: 202002, end: 202002
  11. FENTANYL. [Concomitant]
     Active Substance: FENTANYL
     Dosage: 3 UG/KG
     Route: 040
     Dates: start: 202002, end: 202002
  12. DEXMEDETOMIDINE HYDROCHLORIDE. [Interacting]
     Active Substance: DEXMEDETOMIDINE HYDROCHLORIDE
     Dosage: 1 UG/KG (1 MCG/KG/HOUR)
     Route: 041
     Dates: start: 20200220, end: 20200220
  13. FENTANYL. [Concomitant]
     Active Substance: FENTANYL
     Dosage: 1 UG/KG
     Route: 040
     Dates: start: 20200219, end: 202002

REACTIONS (3)
  - Bradycardia [Recovered/Resolved]
  - Drug interaction [Recovered/Resolved]
  - Sinus arrest [Recovered/Resolved]
